FAERS Safety Report 6395287-2 (Version None)
Quarter: 2009Q4

REPORT INFORMATION
  Report Type: 
  Country: None (occurrence: None)
  Receive Date: 20091009
  Receipt Date: 20091009
  Transmission Date: 20100525
  Serious: Yes (Death)
  Sender: FDA-Public Use
  Company Number: A0810748A

PATIENT
  Age: 47 Year
  Sex: Female

DRUGS (3)
  1. TYKERB [Suspect]
     Indication: BREAST CANCER
     Route: 048
  2. LOVENOX [Concomitant]
  3. XELODA [Concomitant]

REACTIONS (1)
  - DEATH [None]
